FAERS Safety Report 6373967-2 (Version None)
Quarter: 2009Q3

REPORT INFORMATION
  Report Type: 
  Country: None (occurrence: None)
  Receive Date: 20090924
  Receipt Date: 20090917
  Transmission Date: 20100115
  Serious: Yes (Life-Threatening, Other)
  Sender: FDA-Public Use
  Company Number: EG-ROCHE-632745

PATIENT
  Age: 43 Year
  Sex: Male
  Weight: 99 kg

DRUGS (4)
  1. PEG-INTERFERON ALFA 2A (RO 25-8310) [Suspect]
     Route: 058
     Dates: start: 20081118
  2. RIBAVIRIN [Suspect]
     Route: 048
     Dates: start: 20081118
  3. ATACAND HCT [Concomitant]
     Indication: HYPERTENSION
     Dosage: FREQUENCY: ONCE DAILY
     Route: 048
     Dates: start: 20071101
  4. TORNALATE [Concomitant]
     Indication: HYPERTENSION
     Dosage: FREQUENCY: ONCE DAILY
     Route: 048
     Dates: start: 20071101

REACTIONS (4)
  - ANAEMIA [None]
  - FATIGUE [None]
  - LEUKOPENIA [None]
  - THROMBOCYTOPENIA [None]
